FAERS Safety Report 6000097-1 (Version None)
Quarter: 2008Q4

REPORT INFORMATION
  Report Type: 
  Country: None (occurrence: None)
  Receive Date: 20081215
  Receipt Date: 20081211
  Transmission Date: 20090506
  Serious: Yes (Hospitalization)
  Sender: FDA-Public Use
  Company Number: B0550024A

PATIENT
  Age: 23 Year
  Sex: Female

DRUGS (4)
  1. TEGRETOL [Suspect]
     Indication: EPILEPSY
     Dosage: 800MG PER DAY
     Route: 048
     Dates: start: 20070309, end: 20070720
  2. LAMOTRIGINE [Suspect]
     Route: 065
  3. KEPPRA [Concomitant]
     Route: 065
  4. VALPROIC ACID [Concomitant]
     Indication: EPILEPSY
     Dates: start: 20070101

REACTIONS (18)
  - ABDOMINAL PAIN UPPER [None]
  - APHASIA [None]
  - BALANCE DISORDER [None]
  - CONFUSIONAL STATE [None]
  - CONVERSION DISORDER [None]
  - COORDINATION ABNORMAL [None]
  - DIPLOPIA [None]
  - DIZZINESS [None]
  - EPILEPSY [None]
  - EYE MOVEMENT DISORDER [None]
  - HALLUCINATION [None]
  - HEADACHE [None]
  - HIRSUTISM [None]
  - MOOD ALTERED [None]
  - MUSCLE SPASMS [None]
  - NAUSEA [None]
  - PHOTOPHOBIA [None]
  - VISION BLURRED [None]
